FAERS Safety Report 16183201 (Version 1)
Quarter: 2019Q2

REPORT INFORMATION
  Report Type: Spontaneous
  Country: MX (occurrence: MX)
  Receive Date: 20190411
  Receipt Date: 20190411
  Transmission Date: 20190711
  Serious: Yes (Death, Life-Threatening, Hospitalization, Other)
  Sender: FDA-Public Use
  Company Number: MX-ACCORD-118286

PATIENT
  Age: 24 Year
  Sex: Male
  Weight: 98 kg

DRUGS (6)
  1. BLEOMYCIN [Suspect]
     Active Substance: BLEOMYCIN SULFATE
     Indication: MALIGNANT NEOPLASM OF SPINAL CORD
     Dosage: REPEATED EVERY 21 DAYS
  2. CISPLATIN. [Suspect]
     Active Substance: CISPLATIN
     Indication: TESTICULAR EMBRYONAL CARCINOMA
     Dosage: REPEATED EVERY 21 DAYS
  3. CISPLATIN. [Suspect]
     Active Substance: CISPLATIN
     Indication: MALIGNANT NEOPLASM OF SPINAL CORD
     Dosage: REPEATED EVERY 21 DAYS
  4. ETOPOSIDE. [Suspect]
     Active Substance: ETOPOSIDE
     Indication: TESTICULAR EMBRYONAL CARCINOMA
     Dosage: REPEATED EVERY 21 DAYS
  5. BLEOMYCIN [Suspect]
     Active Substance: BLEOMYCIN SULFATE
     Indication: TESTICULAR EMBRYONAL CARCINOMA
     Dosage: REPEATED EVERY 21 DAYS
  6. ETOPOSIDE. [Suspect]
     Active Substance: ETOPOSIDE
     Indication: TESTICULAR EMBRYONAL CARCINOMA
     Dosage: REPEATED EVERY 21 DAYS

REACTIONS (2)
  - Pulmonary embolism [Fatal]
  - Respiratory failure [Fatal]
